FAERS Safety Report 23633709 (Version 1)
Quarter: 2024Q1

REPORT INFORMATION
  Report Type: Spontaneous
  Country: US (occurrence: None)
  Receive Date: 20240314
  Receipt Date: 20240314
  Transmission Date: 20240410
  Serious: No
  Sender: FDA-Public Use
  Company Number: None

PATIENT
  Sex: 0

DRUGS (1)
  1. PROCRIT [Suspect]
     Active Substance: ERYTHROPOIETIN

REACTIONS (3)
  - Haemoglobin decreased [None]
  - Refusal of treatment by patient [None]
  - Blood product refusal [None]

NARRATIVE: CASE EVENT DATE: 20240314
